FAERS Safety Report 8767057 (Version 1)
Quarter: 2012Q4

REPORT INFORMATION
  Report Type: 
  Country: JP (occurrence: JP)
  Receive Date: 20120904
  Receipt Date: 20120904
  Transmission Date: 20130627
  Serious: Yes (Death, Other)
  Sender: FDA-Public Use
  Company Number: PHHY2012JP075940

PATIENT
  Age: 28 Year
  Sex: Female

DRUGS (3)
  1. TACROLIMUS [Suspect]
     Indication: PROPHYLAXIS AGAINST GRAFT VERSUS HOST DISEASE
  2. METHOTREXATE [Suspect]
     Indication: PROPHYLAXIS AGAINST GRAFT VERSUS HOST DISEASE
  3. PREDNISOLONE [Suspect]
     Indication: ACUTE GRAFT VERSUS HOST DISEASE
     Dosage: 1 mg/kg, UNK

REACTIONS (6)
  - Encephalomyelitis [Fatal]
  - Simplex virus test positive [Fatal]
  - Altered state of consciousness [Fatal]
  - Encephalopathy [Recovering/Resolving]
  - Acute graft versus host disease [Unknown]
  - Human herpes virus 6 serology positive [Recovering/Resolving]
